FAERS Safety Report 9723694 (Version 1)
Quarter: 2013Q4

REPORT INFORMATION
  Report Type: Spontaneous
  Country: GR (occurrence: GR)
  Receive Date: 20131202
  Receipt Date: 20131202
  Transmission Date: 20140711
  Serious: Yes (Other)
  Sender: FDA-Public Use
  Company Number: GR-GLAXOSMITHKLINE-B0949136A

PATIENT
  Age: 58 Year
  Sex: Male

DRUGS (2)
  1. PROPAFENONE [Suspect]
     Indication: CARDIOVERSION
     Dosage: 600MG PER DAY
     Route: 065
  2. VERAPAMIL [Concomitant]
     Route: 042

REACTIONS (4)
  - Brugada syndrome [Recovered/Resolved]
  - Electrocardiogram ST segment elevation [Unknown]
  - Electrocardiogram QRS complex abnormal [Unknown]
  - Electrocardiogram T wave inversion [Unknown]
